FAERS Safety Report 15386134 (Version 2)
Quarter: 2018Q4

REPORT INFORMATION
  Report Type: Spontaneous
  Country: AU (occurrence: AU)
  Receive Date: 20180914
  Receipt Date: 20181008
  Transmission Date: 20190204
  Serious: Yes (Other)
  Sender: FDA-Public Use
  Company Number: AU-ROCHE-2183879

PATIENT
  Age: 37 Year
  Sex: Female

DRUGS (3)
  1. OMALIZUMAB. [Suspect]
     Active Substance: OMALIZUMAB
     Indication: HERPES GESTATIONIS
     Route: 065
  2. IVIG [Concomitant]
     Active Substance: HUMAN IMMUNOGLOBULIN G
     Dosage: 2 G/KG
     Route: 042
  3. RITUXIMAB. [Suspect]
     Active Substance: RITUXIMAB
     Indication: HERPES GESTATIONIS
     Route: 065

REACTIONS (2)
  - Anaphylactic reaction [Unknown]
  - Treatment failure [Unknown]
